FAERS Safety Report 5854746-9 (Version None)
Quarter: 2008Q3

REPORT INFORMATION
  Report Type: 
  Country: None (occurrence: None)
  Receive Date: 20080822
  Receipt Date: 20071230
  Transmission Date: 20090109
  Serious: No
  Sender: FDA-Public Use
  Company Number: US-ABBOTT-08P-163-0432564-00

PATIENT
  Sex: Male
  Weight: 66.284 kg

DRUGS (8)
  1. SYNTHROID [Suspect]
     Indication: THYROXINE THERAPY
     Route: 048
     Dates: start: 20070201
  2. SYNTHROID [Suspect]
     Route: 048
  3. SYNTHROID [Suspect]
     Route: 048
     Dates: start: 20070901
  4. SYNTHROID [Suspect]
     Route: 048
     Dates: start: 20071201
  5. SYNTHROID [Suspect]
     Route: 048
  6. SYNTHROID [Suspect]
     Route: 048
     Dates: start: 20071229, end: 20080102
  7. SYNTHROID [Suspect]
     Route: 048
     Dates: start: 20080102
  8. ROSUVASTATIN [Concomitant]
     Indication: BLOOD CHOLESTEROL ABNORMAL

REACTIONS (1)
  - ARRHYTHMIA [None]
